FAERS Safety Report 4422880-6 (Version None)
Quarter: 2004Q3

REPORT INFORMATION
  Report Type: 
  Country: None (occurrence: None)
  Receive Date: 20040811
  Receipt Date: 20040730
  Transmission Date: 20050211
  Serious: Yes (Other)
  Sender: FDA-Public Use
  Company Number: FR-JNJFOC-20040603859

PATIENT
  Age: 28 Year
  Sex: Male
  Weight: 65 kg

DRUGS (1)
  1. REMICADE [Suspect]
     Indication: ANKYLOSING SPONDYLITIS
     Route: 042

REACTIONS (10)
  - ASPERGILLOSIS [None]
  - COUGH [None]
  - DISSEMINATED TUBERCULOSIS [None]
  - GENERAL PHYSICAL HEALTH DETERIORATION [None]
  - HYPERTHERMIA [None]
  - LUNG DISORDER [None]
  - LYMPHADENOPATHY [None]
  - MEDIASTINAL BIOPSY ABNORMAL [None]
  - NECROSIS [None]
  - WEIGHT DECREASED [None]
